FAERS Safety Report 20130959 (Version 1)
Quarter: 2021Q4

REPORT INFORMATION
  Report Type: Report from Study
  Country: AU (occurrence: AU)
  Receive Date: 20211130
  Receipt Date: 20211130
  Transmission Date: 20220304
  Serious: Yes (Death)
  Sender: FDA-Public Use
  Company Number: AU-PFIZER INC-202101654004

PATIENT
  Age: 19 Year
  Sex: Male

DRUGS (3)
  1. ADRIAMYCIN [Suspect]
     Active Substance: DOXORUBICIN HYDROCHLORIDE
     Indication: Osteosarcoma
     Dosage: AT THREE-WEEK INTERVALS
     Route: 013
  2. CISPLATIN [Suspect]
     Active Substance: CISPLATIN
     Indication: Osteosarcoma
     Dosage: AT THREE-WEEK INTERVALS
     Route: 013
  3. METHOTREXATE [Suspect]
     Active Substance: METHOTREXATE
     Indication: Osteosarcoma
     Dosage: FIRST POSTOPERATIVE CYCLE
     Route: 042

REACTIONS (2)
  - Cardiomyopathy [Fatal]
  - Acute kidney injury [Fatal]
